FAERS Safety Report 6939414-4 (Version None)
Quarter: 2010Q3

REPORT INFORMATION
  Report Type: 
  Country: None (occurrence: None)
  Receive Date: 20100819
  Receipt Date: 20100810
  Transmission Date: 20110219
  Serious: Yes (Hospitalization)
  Sender: FDA-Public Use
  Company Number: TCI2010A03129

PATIENT
  Age: 55 Year
  Sex: Male

DRUGS (4)
  1. ACTOS [Suspect]
     Indication: DIABETES MELLITUS
     Dosage: 15 MG (15 MG,1 IN 1 D) PER ORAL
     Route: 048
     Dates: start: 20090709, end: 20100804
  2. MP-513 (ORAL ANTIDIABETICS) [Suspect]
     Indication: TYPE 2 DIABETES MELLITUS
     Dosage: 20 MG (20 MG,1 IN 1 D) PER ORAL
     Route: 048
     Dates: start: 20100509, end: 20100804
  3. NIFEDIPINE CR (NIFEDIPINE) [Concomitant]
  4. BIFONAZOLE (BIFONAZOLE) [Concomitant]

REACTIONS (1)
  - ACUTE MYOCARDIAL INFARCTION [None]
